FAERS Safety Report 12894259 (Version 2)
Quarter: 2016Q4

REPORT INFORMATION
  Report Type: Spontaneous
  Country: DE (occurrence: DE)
  Receive Date: 20161028
  Receipt Date: 20161117
  Transmission Date: 20170207
  Serious: Yes (Hospitalization, Other)
  Sender: FDA-Public Use
  Company Number: DE-JNJFOC-20160907459

PATIENT
  Sex: Male
  Weight: 96 kg

DRUGS (8)
  1. ZYTIGA [Suspect]
     Active Substance: ABIRATERONE ACETATE
     Indication: PROSTATE CANCER METASTATIC
     Route: 048
     Dates: start: 201412, end: 20160808
  2. TORASEMID [Concomitant]
     Active Substance: TORSEMIDE
     Route: 065
  3. TRENANTONE [Concomitant]
     Active Substance: LEUPROLIDE ACETATE
     Route: 065
  4. LEVOTHYROXIN [Concomitant]
     Active Substance: LEVOTHYROXINE
     Route: 065
  5. BISOPROLOL [Concomitant]
     Active Substance: BISOPROLOL
     Route: 065
  6. PANTOPRAZOLE [Concomitant]
     Active Substance: PANTOPRAZOLE SODIUM
     Route: 065
  7. XGEVA [Concomitant]
     Active Substance: DENOSUMAB
     Route: 065
  8. IRBESARTAN. [Concomitant]
     Active Substance: IRBESARTAN
     Route: 065

REACTIONS (3)
  - Prostate cancer metastatic [Recovered/Resolved]
  - Generalised oedema [Recovered/Resolved]
  - Lymphoedema [Recovered/Resolved]
